FAERS Safety Report 21164262 (Version 1)
Quarter: 2022Q3

REPORT INFORMATION
  Report Type: Spontaneous
  Country: GB (occurrence: None)
  Receive Date: 20220803
  Receipt Date: 20220803
  Transmission Date: 20221027
  Serious: Yes (Death)
  Sender: FDA-Public Use
  Company Number: GB-Merck Healthcare KGaA-9340323

PATIENT
  Age: 23 Year
  Sex: Male

DRUGS (1)
  1. SAIZEN [Suspect]
     Active Substance: SOMATROPIN
     Indication: Growth hormone deficiency
     Dosage: FORM STRENGTH: 20MG/2.5ML

REACTIONS (1)
  - Death [Fatal]

NARRATIVE: CASE EVENT DATE: 20220618
